FAERS Safety Report 15536503 (Version 2)
Quarter: 2018Q4

REPORT INFORMATION
  Report Type: Spontaneous
  Country: US (occurrence: US)
  Receive Date: 20181022
  Receipt Date: 20181116
  Transmission Date: 20190205
  Serious: Yes (Other)
  Sender: FDA-Public Use
  Company Number: PHEH2018US044168

PATIENT
  Sex: Female

DRUGS (2)
  1. LETROZOLE. [Suspect]
     Active Substance: LETROZOLE
     Indication: BREAST CANCER
     Dosage: UNK UNK, QD
     Route: 048
  2. IBRANCE [Interacting]
     Active Substance: PALBOCICLIB
     Indication: BREAST CANCER
     Dosage: 75 MG, QD
     Route: 048
     Dates: start: 20180521, end: 20180826

REACTIONS (3)
  - Drug interaction [Unknown]
  - Parkinson^s disease [Unknown]
  - Fatigue [Unknown]
